FAERS Safety Report 5567562-2 (Version None)
Quarter: 2007Q4

REPORT INFORMATION
  Report Type: 
  Country: None (occurrence: None)
  Receive Date: 20071219
  Receipt Date: 20071211
  Transmission Date: 20080405
  Serious: Yes (Hospitalization, Other)
  Sender: FDA-Public Use
  Company Number: US-PFIZER INC-2007060290

PATIENT
  Sex: Female
  Weight: 87.5 kg

DRUGS (12)
  1. CHANTIX [Suspect]
     Indication: SMOKING CESSATION THERAPY
  2. ALPRAZOLAM [Interacting]
     Indication: ANXIETY
  3. VACCINIUM MACROCARPON [Interacting]
  4. TRILEPTAL [Concomitant]
  5. BENICAR [Concomitant]
  6. ATENOLOL [Concomitant]
  7. ACIPHEX [Concomitant]
  8. NASONEX [Concomitant]
  9. VITAMIN D [Concomitant]
  10. IBUPROFEN [Concomitant]
  11. DEMEROL [Concomitant]
  12. CALCIUM [Concomitant]

REACTIONS (9)
  - ANXIETY [None]
  - DISTURBANCE IN ATTENTION [None]
  - DRUG INTERACTION [None]
  - FATIGUE [None]
  - HEADACHE [None]
  - MENTAL IMPAIRMENT [None]
  - MYOCARDIAL INFARCTION [None]
  - NAUSEA [None]
  - SOMNOLENCE [None]
